FAERS Safety Report 15478929 (Version 1)
Quarter: 2018Q4

REPORT INFORMATION
  Report Type: Report from Study
  Country: US (occurrence: US)
  Receive Date: 20181009
  Receipt Date: 20181009
  Transmission Date: 20190205
  Serious: Yes (Other)
  Sender: FDA-Public Use
  Company Number: US-INCYTE CORPORATION-2018IN010160

PATIENT

DRUGS (1)
  1. JAKAFI [Suspect]
     Active Substance: RUXOLITINIB
     Indication: MYELOFIBROSIS
     Dosage: 5 MG, BID
     Route: 048
     Dates: start: 20180315

REACTIONS (3)
  - Nasopharyngitis [Recovering/Resolving]
  - Feeling abnormal [Recovering/Resolving]
  - West Nile viral infection [Recovering/Resolving]

NARRATIVE: CASE EVENT DATE: 20181001
